FAERS Safety Report 24238229 (Version 1)
Quarter: 2024Q3

REPORT INFORMATION
  Report Type: Spontaneous
  Country: NO (occurrence: NO)
  Receive Date: 20240822
  Receipt Date: 20240822
  Transmission Date: 20241017
  Serious: Yes (Hospitalization)
  Sender: GLAXOSMITHKLINE
  Company Number: None

PATIENT

DRUGS (1)
  1. SUMATRIPTAN SUCCINATE [Suspect]
     Active Substance: SUMATRIPTAN SUCCINATE
     Indication: Migraine
     Dosage: 1 DF (PRN, ONE DOSE DURING ATTACKS)
     Route: 045
     Dates: start: 202311, end: 20240807

REACTIONS (4)
  - Muscle spasms [Recovering/Resolving]
  - Muscular weakness [Unknown]
  - Temperature regulation disorder [Unknown]
  - Condition aggravated [Unknown]

NARRATIVE: CASE EVENT DATE: 20240801
